FAERS Safety Report 9683577 (Version 2)
Quarter: 2014Q1

REPORT INFORMATION
  Report Type: Spontaneous
  Country: US (occurrence: US)
  Receive Date: 20131112
  Receipt Date: 20140106
  Transmission Date: 20141002
  Serious: No
  Sender: FDA-Public Use
  Company Number: US-009507513-1311USA004390

PATIENT
  Sex: Female

DRUGS (5)
  1. ZOCOR [Suspect]
     Dosage: UNK
     Route: 048
  2. TYLENOL [Concomitant]
  3. NAPROXEN [Concomitant]
  4. BRUFEN [Concomitant]
  5. TOPAMAX [Concomitant]

REACTIONS (2)
  - Abdominal discomfort [Unknown]
  - Myalgia [Unknown]
